FAERS Safety Report 10870879 (Version 2)
Quarter: 2017Q1

REPORT INFORMATION
  Report Type: Report from Study
  Country: JP (occurrence: JP)
  Receive Date: 20150226
  Receipt Date: 20170328
  Transmission Date: 20170428
  Serious: Yes (Hospitalization)
  Sender: FDA-Public Use
  Company Number: JP-GILEAD-2014-0105607

PATIENT
  Age: 32 Year
  Sex: Female
  Weight: 47 kg

DRUGS (29)
  1. BREDININ [Suspect]
     Active Substance: MIZORIBINE
     Dosage: UNK
     Route: 048
  2. PLETAAL [Concomitant]
     Active Substance: CILOSTAZOL
     Route: 048
  3. BAYASPIRIN [Concomitant]
     Active Substance: ASPIRIN
     Dosage: UNK
     Route: 048
     Dates: end: 20130214
  4. AMBRISENTAN [Suspect]
     Active Substance: AMBRISENTAN
     Dosage: 5 MG, QD
     Route: 048
     Dates: start: 20121208, end: 20121219
  5. PLETAAL [Concomitant]
     Active Substance: CILOSTAZOL
     Route: 048
  6. CALFINA [Concomitant]
     Active Substance: ALFACALCIDOL
     Dosage: UNK
  7. BACTRAMIN [Concomitant]
     Active Substance: SULFAMETHOXAZOLE\TRIMETHOPRIM
     Route: 048
  8. LOXONIN [Concomitant]
     Active Substance: LOXOPROFEN SODIUM
     Dosage: 180 MG, QD
  9. PROGRAF [Suspect]
     Active Substance: TACROLIMUS\TACROLIMUS ANHYDROUS
     Indication: PRODUCT USED FOR UNKNOWN INDICATION
     Dosage: 3 MG, QD
     Route: 048
  10. BACTRAMIN [Concomitant]
     Active Substance: SULFAMETHOXAZOLE\TRIMETHOPRIM
     Route: 048
  11. PLETAAL [Concomitant]
     Active Substance: CILOSTAZOL
     Route: 048
  12. CALFINA [Concomitant]
     Active Substance: ALFACALCIDOL
     Indication: PROPHYLAXIS
     Route: 048
  13. BREDININ [Suspect]
     Active Substance: MIZORIBINE
     Indication: PRODUCT USED FOR UNKNOWN INDICATION
     Dosage: 150 MG, UNK
     Route: 048
     Dates: end: 20130131
  14. FERROMIA [Concomitant]
     Active Substance: FERROUS CITRATE
     Route: 048
     Dates: start: 20121215, end: 20130131
  15. CARELOAD [Concomitant]
     Active Substance: BERAPROST SODIUM
     Route: 048
  16. AMBRISENTAN [Suspect]
     Active Substance: AMBRISENTAN
     Indication: PULMONARY ARTERIAL HYPERTENSION
     Dosage: 2.5 MG, QD
     Route: 048
     Dates: start: 20121204, end: 20121207
  17. AMBRISENTAN [Suspect]
     Active Substance: AMBRISENTAN
     Dosage: 5 MG, QD
     Route: 048
     Dates: end: 20130306
  18. BACTRAMIN [Concomitant]
     Active Substance: SULFAMETHOXAZOLE\TRIMETHOPRIM
     Route: 048
  19. BACTRAMIN [Concomitant]
     Active Substance: SULFAMETHOXAZOLE\TRIMETHOPRIM
     Dosage: UNK
  20. PLETAAL [Concomitant]
     Active Substance: CILOSTAZOL
     Dosage: UNK
  21. CALFINA [Concomitant]
     Active Substance: ALFACALCIDOL
     Route: 048
  22. CALFINA [Concomitant]
     Active Substance: ALFACALCIDOL
     Route: 048
  23. ADALAT CRONO [Concomitant]
     Active Substance: NIFEDIPINE
     Indication: PULMONARY HYPERTENSION
     Route: 048
  24. PREDONINE [Concomitant]
     Active Substance: PREDNISOLONE
     Route: 048
  25. AMBRISENTAN [Suspect]
     Active Substance: AMBRISENTAN
     Dosage: 2.5 MG, QD
     Route: 048
     Dates: start: 20121220, end: 20130124
  26. PROGRAF [Suspect]
     Active Substance: TACROLIMUS\TACROLIMUS ANHYDROUS
     Dosage: 3 MG, UNK
     Route: 048
  27. BERAPROST [Concomitant]
     Active Substance: BERAPROST
     Indication: PULMONARY ARTERIAL HYPERTENSION
     Route: 048
  28. DORNALIN [Concomitant]
     Active Substance: BERAPROST SODIUM
     Indication: PULMONARY HYPERTENSION
     Dosage: UNK
     Route: 048
     Dates: start: 20121121, end: 20130314
  29. MUCOSTA [Concomitant]
     Active Substance: REBAMIPIDE
     Indication: PROPHYLAXIS
     Dosage: 180 MG, UNK

REACTIONS (5)
  - Pyrexia [Recovered/Resolved]
  - Abdominal pain [Recovered/Resolved]
  - Hepatic function abnormal [Recovered/Resolved]
  - Hepatic function abnormal [Recovering/Resolving]
  - Vomiting [Recovered/Resolved]

NARRATIVE: CASE EVENT DATE: 20121220
